FAERS Safety Report 25866490 (Version 2)
Quarter: 2025Q4

REPORT INFORMATION
  Report Type: Spontaneous
  Country: US (occurrence: US)
  Receive Date: 20250930
  Receipt Date: 20251028
  Transmission Date: 20260118
  Serious: No
  Sender: PFIZER
  Company Number: US-PFIZER INC-202500193527

PATIENT
  Sex: Male
  Weight: 98.4 kg

DRUGS (3)
  1. EPINEPHRINE\LIDOCAINE HYDROCHLORIDE [Suspect]
     Active Substance: EPINEPHRINE\LIDOCAINE HYDROCHLORIDE
     Indication: Local anaesthesia
     Dosage: 26 ML BUFFERED WITH SODIUM CARBONATE, 20 ML PRE-PROCEDURE AND 6 ML DURING PROCEDURE)
     Route: 023
     Dates: start: 20250925, end: 20250925
  2. TIRZEPATIDE [Concomitant]
     Active Substance: TIRZEPATIDE
     Dosage: 15 MG, WEEKLY
  3. SODIUM CARBONATE [Concomitant]
     Active Substance: SODIUM CARBONATE
     Indication: Vehicle solution use

REACTIONS (3)
  - Pain [Recovered/Resolved]
  - Haemorrhage [Recovered/Resolved]
  - Therapeutic product effect incomplete [Unknown]

NARRATIVE: CASE EVENT DATE: 20250925
